FAERS Safety Report 18159360 (Version 2)
Quarter: 2020Q3

REPORT INFORMATION
  Report Type: Spontaneous
  Country: TR (occurrence: TR)
  Receive Date: 20200818
  Receipt Date: 20200907
  Transmission Date: 20201103
  Serious: Yes (Death)
  Sender: FDA-Public Use
  Company Number: TR-BEH-2020121075

PATIENT
  Age: 70 Year
  Sex: Male

DRUGS (4)
  1. METHYLPREDNISOLONE. [Suspect]
     Active Substance: METHYLPREDNISOLONE
     Dosage: 250 MILLIGRAM, QD
     Route: 065
  2. HUMAN IMMUNOGLOBULIN (INN) [Suspect]
     Active Substance: HUMAN IMMUNOGLOBULIN G
     Indication: ACUTE MOTOR AXONAL NEUROPATHY
     Dosage: 0.4 GRAM PER KILOGRAM, QD
     Route: 042
  3. NIVOLUMAB [Concomitant]
     Active Substance: NIVOLUMAB
     Dosage: 3 MILLIGRAM, QOW
     Route: 065
  4. METHYLPREDNISOLONE. [Suspect]
     Active Substance: METHYLPREDNISOLONE
     Indication: ACUTE MOTOR AXONAL NEUROPATHY
     Dosage: 250 MILLIGRAM, QD
     Route: 065

REACTIONS (1)
  - Drug ineffective [Fatal]
